FAERS Safety Report 5627118-X (Version None)
Quarter: 2008Q1

REPORT INFORMATION
  Report Type: 
  Country: None (occurrence: None)
  Receive Date: 20080212
  Receipt Date: 20080212
  Transmission Date: 20080703
  Serious: Yes (Life-Threatening, Other)
  Sender: FDA-Public Use
  Company Number: None

PATIENT
  Age: 46 Year
  Sex: Male
  Weight: 83.9154 kg

DRUGS (1)
  1. CHANTIX [Suspect]
     Indication: SMOKING CESSATION THERAPY
     Dosage: 1 MG TWICE DAILY PO
     Route: 048
     Dates: start: 20080105, end: 20080210

REACTIONS (9)
  - ANGER [None]
  - DEPRESSION [None]
  - DRY MOUTH [None]
  - IMPATIENCE [None]
  - NAUSEA [None]
  - NIGHTMARE [None]
  - NO THERAPEUTIC RESPONSE [None]
  - SLEEP DISORDER [None]
  - SUICIDAL IDEATION [None]
